FAERS Safety Report 16529135 (Version 1)
Quarter: 2019Q3

REPORT INFORMATION
  Report Type: Report from Study
  Country: None (occurrence: CL)
  Receive Date: 20190704
  Receipt Date: 20190704
  Transmission Date: 20191004
  Serious: Yes (Other)
  Sender: FDA-Public Use
  Company Number: CL-ABBVIE-19K-034-2841448-00

PATIENT
  Age: 61 Year
  Sex: Male

DRUGS (2)
  1. METHOTREXATE. [Concomitant]
     Active Substance: METHOTREXATE
     Indication: PSORIATIC ARTHROPATHY
  2. HUMIRA [Suspect]
     Active Substance: ADALIMUMAB
     Indication: PSORIATIC ARTHROPATHY
     Route: 058
     Dates: start: 20120606

REACTIONS (2)
  - Loose tooth [Not Recovered/Not Resolved]
  - Tooth disorder [Unknown]

NARRATIVE: CASE EVENT DATE: 201906
